FAERS Safety Report 15500599 (Version 1)
Quarter: 2018Q4

REPORT INFORMATION
  Report Type: Spontaneous
  Country: US (occurrence: US)
  Receive Date: 20181015
  Receipt Date: 20181015
  Transmission Date: 20190205
  Serious: Yes (Other)
  Sender: FDA-Public Use
  Company Number: None

PATIENT
  Age: 55 Year
  Sex: Female
  Weight: 63.18 kg

DRUGS (12)
  1. CAPECITABINE. [Suspect]
     Active Substance: CAPECITABINE
     Indication: NEOPLASM MALIGNANT
     Route: 048
     Dates: start: 20180509
  2. ONDANSETRON [Concomitant]
     Active Substance: ONDANSETRON
  3. NARATRIPTAN [Concomitant]
     Active Substance: NARATRIPTAN HYDROCHLORIDE
  4. RANITIDINE. [Concomitant]
     Active Substance: RANITIDINE
  5. FLUTICASONE. [Concomitant]
     Active Substance: FLUTICASONE
  6. LAMICTAL [Concomitant]
     Active Substance: LAMOTRIGINE
  7. OXYBUTININ [Concomitant]
     Active Substance: OXYBUTYNIN
  8. PANTAPRAZOLE [Concomitant]
     Active Substance: PANTOPRAZOLE SODIUM
  9. TRETINOIN. [Concomitant]
     Active Substance: TRETINOIN
  10. CLONAZEPAM. [Concomitant]
     Active Substance: CLONAZEPAM
  11. IBUPROFEN. [Concomitant]
     Active Substance: IBUPROFEN
  12. FLUTICASONE. [Concomitant]
     Active Substance: FLUTICASONE

REACTIONS (1)
  - Oral infection [None]

NARRATIVE: CASE EVENT DATE: 20181015
